FAERS Safety Report 7334528-1 (Version None)
Quarter: 2011Q1

REPORT INFORMATION
  Report Type: 
  Country: None (occurrence: None)
  Receive Date: 20110307
  Receipt Date: 20110222
  Transmission Date: 20110831
  Serious: Yes (Death, Hospitalization)
  Sender: FDA-Public Use
  Company Number: FR-ELI_LILLY_AND_COMPANY-FR201102005765

PATIENT
  Sex: Male

DRUGS (6)
  1. SOLUPRED [Concomitant]
     Indication: HAEMOLYTIC ANAEMIA
     Dosage: 20 MG, DAILY (1/D)
     Route: 048
  2. PROZAC [Suspect]
     Route: 048
     Dates: start: 20091225
  3. CARDENSIEL [Concomitant]
     Indication: HYPERTENSION
     Dosage: 2.5 MG, DAILY (1/D)
     Route: 048
     Dates: start: 20091208
  4. PARACETAMOL [Concomitant]
     Dosage: 1 G, DAILY (1/D)
     Route: 048
  5. LASIX [Concomitant]
     Indication: HYPERTENSION
     Dosage: 40 MG, DAILY (1/D)
     Route: 048
     Dates: start: 20091208
  6. CHLORAMINOPHENE [Concomitant]
     Indication: LYMPHOMA
     Dosage: 4 MG, 2/D
     Route: 048

REACTIONS (5)
  - HEPATIC FAILURE [None]
  - TACHYCARDIA [None]
  - JAUNDICE CHOLESTATIC [None]
  - DEHYDRATION [None]
  - RENAL FAILURE [None]
